FAERS Safety Report 24297694 (Version 2)
Quarter: 2024Q3

REPORT INFORMATION
  Report Type: Report from Study
  Country: CA (occurrence: CA)
  Receive Date: 20240909
  Receipt Date: 20240917
  Transmission Date: 20241016
  Serious: No
  Sender: GLAXOSMITHKLINE
  Company Number: CA-GLAXOSMITHKLINE-CA2024036336

PATIENT

DRUGS (2)
  1. MEPOLIZUMAB [Suspect]
     Active Substance: MEPOLIZUMAB
     Indication: Nasal polyps
     Dosage: 100 MG, Q4W
     Route: 058
     Dates: start: 20231124
  2. PREDNISONE [Concomitant]
     Active Substance: PREDNISONE
     Indication: Nasal polyps
     Dosage: UNK UNK, QD

REACTIONS (22)
  - Gastrooesophageal reflux disease [Unknown]
  - Rash [Recovered/Resolved]
  - Eructation [Unknown]
  - Food intolerance [Recovered/Resolved]
  - Arthralgia [Unknown]
  - Loss of personal independence in daily activities [Unknown]
  - Mental disorder [Not Recovered/Not Resolved]
  - General physical condition abnormal [Unknown]
  - Gastrointestinal disorder [Unknown]
  - Insomnia [Unknown]
  - Oropharyngeal pain [Unknown]
  - Anxiety [Unknown]
  - Frustration tolerance decreased [Unknown]
  - Feeling abnormal [Unknown]
  - Oral herpes [Unknown]
  - Stomatitis [Recovered/Resolved]
  - Malaise [Unknown]
  - Hunger [Unknown]
  - Illness [Unknown]
  - Aphthous ulcer [Unknown]
  - Weight increased [Unknown]
  - Tooth discolouration [Unknown]
